FAERS Safety Report 11092658 (Version 1)
Quarter: 2015Q2

REPORT INFORMATION
  Report Type: Spontaneous
  Country: US (occurrence: US)
  Receive Date: 20150506
  Receipt Date: 20150506
  Transmission Date: 20150821
  Serious: Yes (Other)
  Sender: FDA-Public Use
  Company Number: US-CIPLA LTD.-2015US03533

PATIENT

DRUGS (2)
  1. LEVOFLOXACIN. [Suspect]
     Active Substance: LEVOFLOXACIN
     Indication: INFECTION PROPHYLAXIS
     Dosage: 750-MG
     Route: 048
  2. AMINOGLYCOSIDE [Concomitant]
     Indication: INFECTION PROPHYLAXIS
     Route: 030

REACTIONS (2)
  - Escherichia infection [Unknown]
  - Drug resistance [Unknown]
